FAERS Safety Report 18451613 (Version 2)
Quarter: 2021Q1

REPORT INFORMATION
  Report Type: Report from Study
  Country: IT (occurrence: IT)
  Receive Date: 20201102
  Receipt Date: 20210119
  Transmission Date: 20210419
  Serious: Yes (Other)
  Sender: FDA-Public Use
  Company Number: IT-ACCORD-207064

PATIENT
  Age: 70 Year
  Sex: Male

DRUGS (8)
  1. RAMIPRIL. [Suspect]
     Active Substance: RAMIPRIL
     Indication: HYPERTENSION
     Route: 048
     Dates: start: 20190830, end: 20200830
  2. PURSENNID [Concomitant]
  3. CARDIOASPIRIN [Concomitant]
     Active Substance: ASPIRIN
  4. MYSOLINE [Concomitant]
     Active Substance: PRIMIDONE
  5. QUETIAPINE/QUETIAPINE FUMARATE [Concomitant]
     Active Substance: QUETIAPINE FUMARATE
  6. HALCION [Concomitant]
     Active Substance: TRIAZOLAM
  7. DEPAKIN [Concomitant]
     Active Substance: VALPROATE SODIUM
  8. METFORMIN [Concomitant]
     Active Substance: METFORMIN HYDROCHLORIDE

REACTIONS (2)
  - Hypertensive crisis [Recovering/Resolving]
  - Drug ineffective [Unknown]

NARRATIVE: CASE EVENT DATE: 20200830
